FAERS Safety Report 5518936-7 (Version None)
Quarter: 2007Q4

REPORT INFORMATION
  Report Type: 
  Country: None (occurrence: None)
  Receive Date: 20071114
  Receipt Date: 20071114
  Transmission Date: 20080405
  Serious: Yes (Life-Threatening)
  Sender: FDA-Public Use
  Company Number: None

PATIENT
  Sex: Male
  Weight: 14.9687 kg

DRUGS (1)
  1. VANISH 5%NAF WHITE VARNISH  5%   OMNI ORAL PHARMACEUTICALS [Suspect]
     Indication: DENTAL CLEANING
     Dosage: 1 APPLICATION   1 APPLICATION   DENTAL
     Route: 004
     Dates: start: 20071107, end: 20071107

REACTIONS (7)
  - ABNORMAL BEHAVIOUR [None]
  - DOCUMENTED HYPERSENSITIVITY TO ADMINISTERED DRUG [None]
  - PHARMACEUTICAL PRODUCT COMPLAINT [None]
  - REACTION TO DRUG EXCIPIENTS [None]
  - STOMATITIS [None]
  - SWOLLEN TONGUE [None]
  - VOMITING [None]
